FAERS Safety Report 24637978 (Version 2)
Quarter: 2024Q4

REPORT INFORMATION
  Report Type: Spontaneous
  Country: GB (occurrence: GB)
  Receive Date: 20241119
  Receipt Date: 20241218
  Transmission Date: 20250114
  Serious: Yes (Other)
  Sender: PFIZER
  Company Number: None

PATIENT
  Age: 78 Year
  Sex: Male

DRUGS (14)
  1. SPIRONOLACTONE [Suspect]
     Active Substance: SPIRONOLACTONE
     Dosage: 25MG
  2. DIGOXIN [Suspect]
     Active Substance: DIGOXIN
     Dosage: 125 MICROGRAM PER 100 GRAM, ONE TO BE TAKEN EACH DAY
  3. EDOXABAN [Concomitant]
     Active Substance: EDOXABAN
     Dosage: 60 MG, ONCE A DAY, ONE TO BE TAKEN EACH DAY
  4. OMEPRAZOLE [Concomitant]
     Active Substance: OMEPRAZOLE
     Dosage: 20 MG, ONE TO BE TAKEN EACH DAY
  5. FUROSEMIDE [Concomitant]
     Active Substance: FUROSEMIDE
     Dosage: 40 MG, ONE TO BE TAKEN TWICE DAILY
  6. CARBAMAZEPINE [Concomitant]
     Active Substance: CARBAMAZEPINE
     Dosage: 200 MG, TWO TO BE TAKEN THREE TIMES DAILY.
  7. CARBOCYSTEINE [Concomitant]
     Active Substance: CARBOCYSTEINE
     Dosage: 375 MG, THREE TIMES A DAY
  8. RAMIPRIL [Concomitant]
     Active Substance: RAMIPRIL
     Dosage: 2.5 MG, ONCE A DAY  IN THE MORNING.
  9. BISOPROLOL [Concomitant]
     Active Substance: BISOPROLOL
     Dosage: 7.5 MG, ONE TO BE TAKEN IN THE MORNING.
  10. BISOPROLOL [Concomitant]
     Active Substance: BISOPROLOL
     Dosage: 5 MG, ONE TO BE TAKEN AT NIGHT
  11. ALBUTEROL SULFATE [Concomitant]
     Active Substance: ALBUTEROL SULFATE
     Dosage: 100 MICROGRAM PER 100 GRAM, TWO PUFFS AS REQUIRED
  12. TRELEGY ELLIPTA [Concomitant]
     Active Substance: FLUTICASONE FUROATE\UMECLIDINIUM BROMIDE\VILANTEROL TRIFENATATE
     Dosage: UNK
  13. PREGABALIN [Concomitant]
     Active Substance: PREGABALIN
     Dosage: 75 MG, ONE TO BE TAKEN TWICE A DAY
  14. ATORVASTATIN [Concomitant]
     Active Substance: ATORVASTATIN
     Dosage: 10 MG, ONE TO BE TAKEN EACH DAY.

REACTIONS (1)
  - Pemphigoid [Unknown]
